FAERS Safety Report 9639995 (Version 1)
Quarter: 2013Q4

REPORT INFORMATION
  Report Type: Report from Study
  Country: BR (occurrence: BR)
  Receive Date: 20131023
  Receipt Date: 20131023
  Transmission Date: 20140711
  Serious: Yes (Other)
  Sender: FDA-Public Use
  Company Number: PHHY2013BR117047

PATIENT
  Sex: Female
  Weight: 43 kg

DRUGS (2)
  1. RITALIN LA [Suspect]
     Indication: DISTURBANCE IN ATTENTION
     Dosage: 01 DF, QD (IN THE AFTERNOON)
     Dates: start: 20131009
  2. RITALINA [Suspect]
     Dosage: 01 DF, QD (IN THE MORNING)
     Dates: start: 20131009

REACTIONS (4)
  - Generalised erythema [Recovering/Resolving]
  - Abnormal behaviour [Unknown]
  - Logorrhoea [Recovering/Resolving]
  - Agitation [Recovering/Resolving]
